FAERS Safety Report 8979510 (Version 1)
Quarter: 2012Q4

REPORT INFORMATION
  Report Type: 
  Country: US (occurrence: US)
  Receive Date: 20121221
  Receipt Date: 20121221
  Transmission Date: 20130627
  Serious: Yes (Life-Threatening, Other)
  Sender: FDA-Public Use
  Company Number: US-BANPHARM-20120452

PATIENT
  Sex: Female

DRUGS (1)
  1. ERGOCALCIFEROL [Suspect]
     Route: 048

REACTIONS (2)
  - Anaphylactic reaction [Unknown]
  - Angioedema [Unknown]
